FAERS Safety Report 4441713-5 (Version None)
Quarter: 2004Q3

REPORT INFORMATION
  Report Type: 
  Country: None (occurrence: None)
  Receive Date: 20040903
  Receipt Date: 20040831
  Transmission Date: 20050211
  Serious: Yes (Other)
  Sender: FDA-Public Use
  Company Number: 002598

PATIENT
  Age: 57 Year
  Sex: Female

DRUGS (4)
  1. MEDROXYPROGESTERONE ACETATE [Suspect]
     Dates: start: 19960123, end: 20010414
  2. PROVERA [Suspect]
     Dates: start: 19960123, end: 20010414
  3. PREMARIN [Suspect]
     Dates: start: 19960123, end: 20010414
  4. FEMHRT [Suspect]
     Dates: start: 20010525, end: 20010615

REACTIONS (1)
  - BREAST CANCER [None]
